FAERS Safety Report 9932077 (Version 1)
Quarter: 2014Q1

REPORT INFORMATION
  Report Type: Spontaneous
  Country: US (occurrence: None)
  Receive Date: 20140227
  Receipt Date: 20140227
  Transmission Date: 20141002
  Serious: Yes (Hospitalization)
  Sender: FDA-Public Use
  Company Number: None

PATIENT
  Age: 83 Year
  Sex: Female

DRUGS (6)
  1. IRBESARTAN 300 MG [Suspect]
     Indication: HYPERTENSION
  2. CLOPIDOGREL [Concomitant]
  3. HEPARIN [Concomitant]
  4. METOPROLOL [Concomitant]
  5. PANTOPRAZOLE [Concomitant]
  6. SILVER SULFADIAZINE [Concomitant]

REACTIONS (5)
  - Renal failure acute [None]
  - Nausea [None]
  - Vomiting [None]
  - Frequent bowel movements [None]
  - Hyperkalaemia [None]
